FAERS Safety Report 25451105 (Version 1)
Quarter: 2025Q2

REPORT INFORMATION
  Report Type: Spontaneous
  Country: US (occurrence: US)
  Receive Date: 20250618
  Receipt Date: 20250618
  Transmission Date: 20250716
  Serious: No
  Sender: INTERCEPT PHARMACEUTICALS
  Company Number: US-INTERCEPT-PM2025000510

PATIENT
  Sex: Female

DRUGS (15)
  1. OCALIVA [Suspect]
     Active Substance: OBETICHOLIC ACID
     Indication: Product use in unapproved indication
     Dosage: 10 MILLIGRAM, QD
     Route: 048
  2. ISOSORBIDE [Suspect]
     Active Substance: ISOSORBIDE
     Indication: Product used for unknown indication
     Route: 065
  3. URSODIOL [Concomitant]
     Active Substance: URSODIOL
  4. ALBUTEROL SULFATE [Concomitant]
     Active Substance: ALBUTEROL SULFATE
  5. AMLODIPINE [Concomitant]
     Active Substance: AMLODIPINE BESYLATE
  6. ASPIRIN [Concomitant]
     Active Substance: ASPIRIN
  7. AZATHIOPRINE [Concomitant]
     Active Substance: AZATHIOPRINE
  8. BUPROPION [Concomitant]
     Active Substance: BUPROPION
  9. CLOPIDOGREL [Concomitant]
     Active Substance: CLOPIDOGREL BISULFATE
  10. EZETIMIBE [Concomitant]
     Active Substance: EZETIMIBE
  11. LAMOTRIGINE [Concomitant]
     Active Substance: LAMOTRIGINE
  12. LEVOTHYROXINE [Concomitant]
     Active Substance: LEVOTHYROXINE
  13. LISINOPRIL [Concomitant]
     Active Substance: LISINOPRIL
  14. NITROGLYCERIN [Concomitant]
     Active Substance: NITROGLYCERIN
  15. ONDANSETRON [Concomitant]
     Active Substance: ONDANSETRON

REACTIONS (5)
  - Depression [Unknown]
  - Blood cholesterol abnormal [Recovering/Resolving]
  - Dizziness [Recovering/Resolving]
  - Off label use [Not Recovered/Not Resolved]
  - Therapy interrupted [Unknown]
